FAERS Safety Report 7313205-7 (Version None)
Quarter: 2011Q1

REPORT INFORMATION
  Report Type: 
  Country: None (occurrence: None)
  Receive Date: 20110225
  Receipt Date: 20110214
  Transmission Date: 20110831
  Serious: Yes (Hospitalization, Other)
  Sender: FDA-Public Use
  Company Number: US-ELI_LILLY_AND_COMPANY-US201010005998

PATIENT
  Sex: Female

DRUGS (8)
  1. SPIRIVA [Concomitant]
  2. TIZANIDINE [Concomitant]
     Dosage: 40 MG, UNK
  3. EFFEXOR [Concomitant]
     Dosage: 75 MG, UNK
  4. ADVAIR DISKUS 100/50 [Concomitant]
  5. PROTONIX [Concomitant]
     Dosage: 40 MG, UNK
  6. XANAX [Concomitant]
     Dosage: 0.05 MG, UNK
  7. FORTEO [Suspect]
     Indication: OSTEOPOROSIS
     Dosage: 20 UG, DAILY (1/D)
     Dates: start: 20090801, end: 20101101
  8. SIMVASTATIN [Concomitant]

REACTIONS (5)
  - NERVE INJURY [None]
  - NERVE COMPRESSION [None]
  - INTERVERTEBRAL DISC DEGENERATION [None]
  - SPINAL COLUMN STENOSIS [None]
  - FALL [None]
